FAERS Safety Report 7372569-9 (Version None)
Quarter: 2011Q1

REPORT INFORMATION
  Report Type: 
  Country: None (occurrence: None)
  Receive Date: 20110324
  Receipt Date: 20110317
  Transmission Date: 20110831
  Serious: Yes (Other)
  Sender: FDA-Public Use
  Company Number: GB-MERCK-1011GBR00028

PATIENT
  Age: 68 Year
  Sex: Male

DRUGS (6)
  1. RILUZOLE [Concomitant]
     Indication: MOTOR NEURONE DISEASE
     Route: 065
  2. BENDROFLUMETHIAZIDE [Concomitant]
     Indication: HYPERTENSION
     Route: 065
  3. DOCUSATE SODIUM [Concomitant]
     Indication: CONSTIPATION
     Route: 065
  4. SCOPOLAMINE [Concomitant]
     Indication: SALIVARY HYPERSECRETION
     Route: 065
  5. JANUVIA [Suspect]
     Indication: TYPE 2 DIABETES MELLITUS
     Route: 048
  6. PRINIVIL [Concomitant]
     Indication: HYPERTENSION
     Route: 048

REACTIONS (1)
  - MOTOR NEURONE DISEASE [None]
